FAERS Safety Report 7171277-7 (Version None)
Quarter: 2010Q4

REPORT INFORMATION
  Report Type: 
  Country: None (occurrence: None)
  Receive Date: 20101217
  Receipt Date: 20101209
  Transmission Date: 20110411
  Serious: Yes (Disabling, Other)
  Sender: FDA-Public Use
  Company Number: US-ELI_LILLY_AND_COMPANY-US201012002675

PATIENT
  Age: 69 Year
  Sex: Male

DRUGS (2)
  1. HUMALOG [Suspect]
     Indication: DIABETES MELLITUS
     Dosage: 30 U, OTHER
     Dates: start: 19840101
  2. LEVEMIR [Concomitant]
     Dosage: UNK, 2/D

REACTIONS (4)
  - DIABETIC COMPLICATION [None]
  - LEG AMPUTATION [None]
  - MACULAR DEGENERATION [None]
  - VISUAL ACUITY REDUCED [None]
